FAERS Safety Report 6820108-0 (Version None)
Quarter: 2010Q3

REPORT INFORMATION
  Report Type: 
  Country: None (occurrence: None)
  Receive Date: 20100707
  Receipt Date: 20100630
  Transmission Date: 20110219
  Serious: Yes (Hospitalization)
  Sender: FDA-Public Use
  Company Number: US-ABBOTT-10P-163-0654915-00

PATIENT
  Sex: Male
  Weight: 74.91 kg

DRUGS (4)
  1. HUMIRA [Suspect]
     Indication: CROHN'S DISEASE
     Dates: start: 20091001, end: 20100101
  2. VITAMIN D [Concomitant]
     Indication: VITAMIN SUPPLEMENTATION
  3. VITAMIN B-12 [Concomitant]
     Indication: VITAMIN SUPPLEMENTATION
  4. PREDNISONE TAB [Concomitant]
     Indication: CROHN'S DISEASE

REACTIONS (2)
  - COLONIC STENOSIS [None]
  - URINARY TRACT INFECTION [None]
